FAERS Safety Report 20477169 (Version 1)
Quarter: 2022Q1

REPORT INFORMATION
  Report Type: Spontaneous
  Country: US (occurrence: US)
  Receive Date: 20220215
  Receipt Date: 20220215
  Transmission Date: 20220423
  Serious: Yes (Other)
  Sender: FDA-Public Use
  Company Number: US-CELLTRION INC.-2022US001505

PATIENT

DRUGS (1)
  1. TRUXIMA [Suspect]
     Active Substance: RITUXIMAB-ABBS
     Indication: Marginal zone lymphoma
     Dosage: 403 MG EVERY WEEK
     Dates: start: 20211119

REACTIONS (2)
  - Marginal zone lymphoma [Unknown]
  - Off label use [Unknown]

NARRATIVE: CASE EVENT DATE: 20211119
